FAERS Safety Report 9110536 (Version 1)
Quarter: 2013Q1

REPORT INFORMATION
  Report Type: Spontaneous
  Country: US (occurrence: US)
  Receive Date: 20130219
  Receipt Date: 20130219
  Transmission Date: 20140127
  Serious: No
  Sender: FDA-Public Use
  Company Number: US-BRACCO-008536

PATIENT
  Age: 57 Year
  Sex: Female
  Weight: 65 kg

DRUGS (5)
  1. ISOVUE 370 [Suspect]
     Indication: COMPUTERISED TOMOGRAM
     Route: 042
     Dates: start: 20120821, end: 20120821
  2. ISOVUE 370 [Suspect]
     Indication: BRONCHITIS
     Route: 042
     Dates: start: 20120821, end: 20120821
  3. ISOVUE 370 [Suspect]
     Indication: BRONCHIAL HYPERREACTIVITY
     Route: 042
     Dates: start: 20120821, end: 20120821
  4. ISOVUE 370 [Suspect]
     Indication: LUNG NEOPLASM
     Route: 042
     Dates: start: 20120821, end: 20120821
  5. LEVOTHYROXINE [Concomitant]

REACTIONS (3)
  - Dysuria [Recovered/Resolved]
  - Nervousness [Recovered/Resolved]
  - Feeling cold [Recovered/Resolved]
